FAERS Safety Report 24286016 (Version 3)
Quarter: 2025Q1

REPORT INFORMATION
  Report Type: Report from Study
  Country: IT (occurrence: IT)
  Receive Date: 20240905
  Receipt Date: 20250327
  Transmission Date: 20250409
  Serious: Yes (Hospitalization)
  Sender: PFIZER
  Company Number: IT-MLMSERVICE-20240826-PI172319-00097-1

PATIENT
  Age: 20 Year
  Sex: Male

DRUGS (17)
  1. METHOTREXATE SODIUM [Suspect]
     Active Substance: METHOTREXATE SODIUM
     Indication: Still^s disease
     Dosage: 15 MG, WEEKLY
     Route: 058
     Dates: start: 202007
  2. METHYLPREDNISOLONE SODIUM SUCCINATE [Suspect]
     Active Substance: METHYLPREDNISOLONE SODIUM SUCCINATE
     Indication: Haemophagocytic lymphohistiocytosis
     Route: 042
     Dates: start: 202202, end: 2022
  3. METHYLPREDNISOLONE SODIUM SUCCINATE [Suspect]
     Active Substance: METHYLPREDNISOLONE SODIUM SUCCINATE
     Indication: Still^s disease
     Dosage: HIGH-DOSE GLUCOCORTICOIDS FOR 3 CONSECUTIVE DAYS
     Route: 042
     Dates: start: 2022, end: 2022
  4. METHYLPREDNISOLONE SODIUM SUCCINATE [Suspect]
     Active Substance: METHYLPREDNISOLONE SODIUM SUCCINATE
     Dosage: 30 MG, 3X/DAY
     Route: 042
     Dates: start: 2022
  5. ANAKINRA [Suspect]
     Active Substance: ANAKINRA
     Indication: Still^s disease
     Dosage: 200 MG, 1X/DAY
     Route: 042
     Dates: start: 2022, end: 2022
  6. ANAKINRA [Suspect]
     Active Substance: ANAKINRA
     Indication: Haemophagocytic lymphohistiocytosis
     Dosage: 400 MG, 1X/DAY (RE-STARTED)
     Route: 042
     Dates: start: 2022, end: 2022
  7. BARICITINIB [Suspect]
     Active Substance: BARICITINIB
     Indication: Still^s disease
     Dosage: 4 MG, 1X/DAY
     Route: 048
     Dates: start: 202007, end: 202202
  8. BARICITINIB [Suspect]
     Active Substance: BARICITINIB
     Dosage: 6 MG, 1X/DAY (DOSE INCREASED)
     Route: 048
     Dates: start: 202202, end: 202206
  9. CANAKINUMAB [Suspect]
     Active Substance: CANAKINUMAB
     Indication: Haemophagocytic lymphohistiocytosis
     Route: 058
     Dates: start: 2022
  10. CANAKINUMAB [Suspect]
     Active Substance: CANAKINUMAB
     Indication: Still^s disease
  11. CYCLOSPORINE [Suspect]
     Active Substance: CYCLOSPORINE
     Indication: Haemophagocytic lymphohistiocytosis
     Dosage: 75 MG, 2X/DAY
     Route: 048
     Dates: start: 2022, end: 2022
  12. CYCLOSPORINE [Suspect]
     Active Substance: CYCLOSPORINE
     Indication: Still^s disease
     Route: 042
     Dates: start: 2022
  13. ECULIZUMAB [Suspect]
     Active Substance: ECULIZUMAB
     Indication: Thrombotic microangiopathy
     Dates: start: 2022
  14. PREDNISONE [Suspect]
     Active Substance: PREDNISONE
     Indication: Still^s disease
     Dosage: 5 MG, 1X/DAY
     Route: 048
     Dates: start: 202007
  15. PREDNISONE [Suspect]
     Active Substance: PREDNISONE
     Dosage: 0.08 MG/KG, 1X/DAY
     Route: 048
  16. ENOXAPARIN [Concomitant]
     Active Substance: ENOXAPARIN
     Indication: Prophylaxis
     Dates: start: 202203
  17. NIRMATRELVIR\RITONAVIR [Concomitant]
     Active Substance: NIRMATRELVIR\RITONAVIR
     Indication: COVID-19
     Dates: start: 202203

REACTIONS (8)
  - Varicella zoster virus infection [Unknown]
  - Oesophageal candidiasis [Recovered/Resolved]
  - Cytomegalovirus infection reactivation [Unknown]
  - Infection reactivation [Unknown]
  - Pseudomonal sepsis [Unknown]
  - Pneumocystis jirovecii pneumonia [Unknown]
  - Spinal fracture [Unknown]
  - Osteoporosis [Unknown]

NARRATIVE: CASE EVENT DATE: 20220101
